FAERS Safety Report 23723205 (Version 3)
Quarter: 2024Q2

REPORT INFORMATION
  Report Type: Report from Study
  Country: US (occurrence: US)
  Receive Date: 20240409
  Receipt Date: 20240522
  Transmission Date: 20240716
  Serious: Yes (Hospitalization, Other)
  Sender: FDA-Public Use
  Company Number: US-BEH-2023166323

PATIENT
  Age: 65 Year
  Sex: Male
  Weight: 71.655 kg

DRUGS (3)
  1. ZEMAIRA [Suspect]
     Active Substance: .ALPHA.1-PROTEINASE INHIBITOR HUMAN
     Indication: Alpha-1 antitrypsin deficiency
     Dosage: 4707 MG, QW
     Route: 042
     Dates: start: 202008
  2. ZEMAIRA [Suspect]
     Active Substance: .ALPHA.1-PROTEINASE INHIBITOR HUMAN
     Dosage: UNK
     Route: 065
  3. EPINEPHRINE [Concomitant]
     Active Substance: EPINEPHRINE

REACTIONS (23)
  - Atrial fibrillation [Unknown]
  - Upper respiratory tract infection [Recovering/Resolving]
  - Insurance issue [Unknown]
  - Therapy interrupted [Unknown]
  - Product dose omission issue [Unknown]
  - Pneumonia [Recovering/Resolving]
  - Dyspnoea [Recovering/Resolving]
  - Sputum increased [Recovering/Resolving]
  - Sinusitis [Recovering/Resolving]
  - Dyspnoea [Recovering/Resolving]
  - Insurance issue [Unknown]
  - Dyspnoea [Not Recovered/Not Resolved]
  - Sputum increased [Not Recovered/Not Resolved]
  - Product dose omission issue [Unknown]
  - Pneumonia [Unknown]
  - Dyspnoea [Unknown]
  - Sputum increased [Unknown]
  - Wheezing [Unknown]
  - Cough [Unknown]
  - Chronic obstructive pulmonary disease [Unknown]
  - Dyspnoea [Unknown]
  - Heart rate irregular [Unknown]
  - Dyspnoea [Unknown]

NARRATIVE: CASE EVENT DATE: 20240301
